FAERS Safety Report 6781222-1 (Version None)
Quarter: 2010Q2

REPORT INFORMATION
  Report Type: 
  Country: None (occurrence: None)
  Receive Date: 20100621
  Receipt Date: 20100519
  Transmission Date: 20101027
  Serious: No
  Sender: FDA-Public Use
  Company Number: US-BAYER-201026044GPV

PATIENT
  Sex: Male

DRUGS (1)
  1. NAPROSYN [Suspect]
     Indication: SCIATICA
     Route: 065

REACTIONS (2)
  - GAIT DISTURBANCE [None]
  - SCIATICA [None]
